FAERS Safety Report 6579122-5 (Version None)
Quarter: 2010Q1

REPORT INFORMATION
  Report Type: 
  Country: None (occurrence: None)
  Receive Date: 20100203
  Receipt Date: 20100122
  Transmission Date: 20100710
  Serious: Yes (Other)
  Sender: FDA-Public Use
  Company Number: 2010AL000607

PATIENT
  Age: 57 Year
  Sex: Female
  Weight: 79 kg

DRUGS (1)
  1. LIDOCAINE HYDROCHLORIDE 2% [Suspect]
     Indication: PAIN
     Dosage: 5 PCT; QD; TOP
     Route: 061
     Dates: start: 20090201, end: 20090507

REACTIONS (3)
  - FEELING HOT [None]
  - PERIPHERAL COLDNESS [None]
  - SENSORY DISTURBANCE [None]
